FAERS Safety Report 6842666-2 (Version None)
Quarter: 2010Q3

REPORT INFORMATION
  Report Type: 
  Country: None (occurrence: None)
  Receive Date: 20100714
  Receipt Date: 20070805
  Transmission Date: 20110219
  Serious: No
  Sender: FDA-Public Use
  Company Number: US-PFIZER INC-2007065835

PATIENT
  Sex: Female
  Weight: 106.6 kg

DRUGS (6)
  1. CHANTIX [Suspect]
     Indication: SMOKING CESSATION THERAPY
     Dates: start: 20070727
  2. LEXAPRO [Concomitant]
     Indication: DEPRESSION
  3. ATENOLOL [Concomitant]
     Indication: BLOOD PRESSURE
  4. HERBAL NOS/MINERALS NOS [Concomitant]
  5. LORAZEPAM [Concomitant]
     Indication: ANXIETY
  6. AMBIEN [Concomitant]
     Indication: INSOMNIA

REACTIONS (7)
  - DISTURBANCE IN ATTENTION [None]
  - DIZZINESS [None]
  - DYSARTHRIA [None]
  - INSOMNIA [None]
  - PALPITATIONS [None]
  - SENSATION OF HEAVINESS [None]
  - THINKING ABNORMAL [None]
